FAERS Safety Report 12597077 (Version 1)
Quarter: 2016Q3

REPORT INFORMATION
  Report Type: Spontaneous
  Country: US (occurrence: US)
  Receive Date: 20160726
  Receipt Date: 20160726
  Transmission Date: 20161109
  Serious: No
  Sender: FDA-Public Use
  Company Number: US-EXELTIS USA INC.-1055588

PATIENT
  Sex: Male

DRUGS (1)
  1. ECOZA [Suspect]
     Active Substance: ECONAZOLE NITRATE
     Indication: TINEA PEDIS
     Route: 061
     Dates: start: 20160713, end: 20160713

REACTIONS (4)
  - Mouth swelling [Recovered/Resolved]
  - Eye swelling [Recovered/Resolved]
  - Pruritus generalised [Recovered/Resolved]
  - Urticaria [Recovered/Resolved]

NARRATIVE: CASE EVENT DATE: 20160713
